FAERS Safety Report 15374724 (Version 3)
Quarter: 2019Q4

REPORT INFORMATION
  Report Type: Spontaneous
  Country: GB (occurrence: GB)
  Receive Date: 20180912
  Receipt Date: 20191211
  Transmission Date: 20200122
  Serious: Yes (Hospitalization)
  Sender: FDA-Public Use
  Company Number: GB-BAUSCH-BL-2018-024640

PATIENT
  Age: 83 Year
  Sex: Male

DRUGS (10)
  1. DEXAMETHASONE. [Suspect]
     Active Substance: DEXAMETHASONE
     Indication: PLASMA CELL MYELOMA
     Route: 048
     Dates: start: 20180306
  2. DEXAMETHASONE. [Suspect]
     Active Substance: DEXAMETHASONE
     Indication: PRODUCT USED FOR UNKNOWN INDICATION
     Route: 048
     Dates: start: 20180508, end: 20180529
  3. DEXAMETHASONE. [Suspect]
     Active Substance: DEXAMETHASONE
     Route: 048
     Dates: start: 20180313
  4. POMALIDOMIDE [Suspect]
     Active Substance: POMALIDOMIDE
     Route: 048
     Dates: start: 20180508, end: 20180516
  5. POMALIDOMIDE [Suspect]
     Active Substance: POMALIDOMIDE
     Route: 048
     Dates: start: 20180410, end: 20180430
  6. POMALIDOMIDE [Suspect]
     Active Substance: POMALIDOMIDE
     Route: 048
     Dates: start: 20180605, end: 20180611
  7. DEXAMETHASONE. [Suspect]
     Active Substance: DEXAMETHASONE
     Route: 048
     Dates: start: 20180327
  8. POMALIDOMIDE [Suspect]
     Active Substance: POMALIDOMIDE
     Indication: PLASMA CELL MYELOMA
     Route: 048
     Dates: start: 20180306, end: 20180326
  9. DEXAMETHASONE. [Suspect]
     Active Substance: DEXAMETHASONE
     Route: 048
     Dates: start: 20180320
  10. POMALIDOMIDE [Suspect]
     Active Substance: POMALIDOMIDE
     Route: 048
     Dates: start: 2018

REACTIONS (3)
  - Sepsis [Recovered/Resolved]
  - Neutropenia [Recovered/Resolved]
  - Neutropenia [Recovered/Resolved]

NARRATIVE: CASE EVENT DATE: 20180320
